FAERS Safety Report 18724704 (Version 3)
Quarter: 2021Q2

REPORT INFORMATION
  Report Type: Spontaneous
  Country: US (occurrence: US)
  Receive Date: 20210111
  Receipt Date: 20210624
  Transmission Date: 20210717
  Serious: Yes (Other)
  Sender: FDA-Public Use
  Company Number: US-PFIZER INC-2021010362

PATIENT
  Age: 58 Year
  Sex: Male
  Weight: 98.41 kg

DRUGS (3)
  1. LIPITOR [Suspect]
     Active Substance: ATORVASTATIN CALCIUM
     Indication: BLOOD CHOLESTEROL INCREASED
     Dosage: UNK
     Dates: end: 202007
  2. ATORVASTATIN CALCIUM. [Suspect]
     Active Substance: ATORVASTATIN CALCIUM
     Dosage: UNK
     Dates: end: 2020
  3. LYRICA [Suspect]
     Active Substance: PREGABALIN
     Dosage: UNK
     Dates: start: 202005

REACTIONS (21)
  - Hypoaesthesia [Unknown]
  - Amnesia [Unknown]
  - Neuralgia [Not Recovered/Not Resolved]
  - Pain [Unknown]
  - Nerve injury [Not Recovered/Not Resolved]
  - Muscular weakness [Unknown]
  - Burning sensation [Recovered/Resolved]
  - Eyelid sensory disorder [Unknown]
  - Sleep deficit [Not Recovered/Not Resolved]
  - Musculoskeletal stiffness [Unknown]
  - Condition aggravated [Unknown]
  - Rhabdomyolysis [Not Recovered/Not Resolved]
  - Prescribed overdose [Unknown]
  - Gait disturbance [Recovering/Resolving]
  - Stupor [Unknown]
  - General physical health deterioration [Unknown]
  - Fatigue [Unknown]
  - Poor peripheral circulation [Unknown]
  - Hypoaesthesia [Recovering/Resolving]
  - Limb discomfort [Recovering/Resolving]
  - Blindness [Unknown]

NARRATIVE: CASE EVENT DATE: 202005
